FAERS Safety Report 8941151 (Version 2)
Quarter: 2012Q4

REPORT INFORMATION
  Report Type: 
  Country: US (occurrence: US)
  Receive Date: 20121121
  Receipt Date: 20121212
  Transmission Date: 20130627
  Serious: Yes (Death, Hospitalization)
  Sender: FDA-Public Use
  Company Number: US-ASTELLAS-1114363

PATIENT
  Sex: Female

DRUGS (1)
  1. TARCEVA [Suspect]
     Indication: MALIGNANT RESPIRATORY TRACT NEOPLASM
     Route: 065
     Dates: start: 20050129

REACTIONS (5)
  - Disease progression [Fatal]
  - Oral candidiasis [Unknown]
  - External ear cellulitis [Unknown]
  - Pyrexia [Recovered/Resolved]
  - Pollakiuria [Recovering/Resolving]
